FAERS Safety Report 6605166-0 (Version None)
Quarter: 2010Q1

REPORT INFORMATION
  Report Type: 
  Country: None (occurrence: None)
  Receive Date: 20100226
  Receipt Date: 20100216
  Transmission Date: 20100710
  Serious: Yes (Hospitalization)
  Sender: FDA-Public Use
  Company Number: NL-WATSON-2010-01954

PATIENT
  Age: 58 Year
  Sex: Male

DRUGS (3)
  1. OMEPRAZOLE (WATSON LABORATORIES) [Suspect]
     Indication: ABDOMINAL PAIN UPPER
     Dosage: 40 MG, DAILY
     Route: 048
  2. PANTOPRAZOLE [Suspect]
     Indication: ABDOMINAL PAIN UPPER
  3. LANSOPRAZOLE [Suspect]
     Indication: ABDOMINAL PAIN UPPER

REACTIONS (5)
  - CONVULSION [None]
  - HYPOCALCAEMIA [None]
  - HYPOKALAEMIA [None]
  - HYPOMAGNESAEMIA [None]
  - LOSS OF CONSCIOUSNESS [None]
